FAERS Safety Report 24117907 (Version 1)
Quarter: 2024Q3

REPORT INFORMATION
  Report Type: Spontaneous
  Country: RU (occurrence: None)
  Receive Date: 20240722
  Receipt Date: 20240722
  Transmission Date: 20241017
  Serious: Yes (Death, Other)
  Sender: UNICHEM
  Company Number: RU-Unichem Pharmaceuticals (USA) Inc-UCM202407-000880

PATIENT
  Sex: Male

DRUGS (1)
  1. DIVALPROEX SODIUM [Suspect]
     Active Substance: DIVALPROEX SODIUM
     Indication: Product used for unknown indication
     Dosage: UNKNOWN

REACTIONS (5)
  - Multiple organ dysfunction syndrome [Fatal]
  - Condition aggravated [Fatal]
  - Malnutrition [Unknown]
  - Brain stem syndrome [Unknown]
  - Hepatitis toxic [Fatal]
